FAERS Safety Report 5650948-5 (Version None)
Quarter: 2008Q1

REPORT INFORMATION
  Report Type: 
  Country: None (occurrence: None)
  Receive Date: 20080131
  Receipt Date: 20071210
  Transmission Date: 20080703
  Serious: No
  Sender: FDA-Public Use
  Company Number: US200712002217

PATIENT
  Age: 45 Year
  Sex: Female

DRUGS (3)
  1. BYETTA [Suspect]
     Indication: TYPE 2 DIABETES MELLITUS
     Dosage: 5 UG, 2/D, SUBCUTANEOUS
     Dates: start: 20071129
  2. EXENATIDE 5MCG PEN, DISPOSABLE DEVICE (EXENATIDE PEN (5MCG) [Concomitant]
  3. GLUCOPHAGE/USA/ (METFORMIN HYDROCHLORIDE) [Concomitant]

REACTIONS (4)
  - COUGH [None]
  - NASOPHARYNGITIS [None]
  - RHINORRHOEA [None]
  - SINUS CONGESTION [None]
